FAERS Safety Report 11891221 (Version 1)
Quarter: 2016Q1

REPORT INFORMATION
  Report Type: Spontaneous
  Country: None (occurrence: None)
  Receive Date: 20160105
  Receipt Date: 20160105
  Transmission Date: 20160526
  Serious: No
  Sender: FDA-Public Use
  Company Number: None

PATIENT
  Age: 65 Year
  Sex: Female
  Weight: 57 kg

DRUGS (1)
  1. LEVOTHYROXIN [Suspect]
     Active Substance: LEVOTHYROXINE
     Indication: HYPOTHYROIDISM
     Dosage: 1 PILL
     Route: 048

REACTIONS (3)
  - Osteoporosis [None]
  - Blood thyroid stimulating hormone decreased [None]
  - Prescribed overdose [None]

NARRATIVE: CASE EVENT DATE: 20151125
